FAERS Safety Report 8824707 (Version 2)
Quarter: 2012Q4

REPORT INFORMATION
  Report Type: 
  Country: US (occurrence: US)
  Receive Date: 20121004
  Receipt Date: 20121227
  Transmission Date: 20130627
  Serious: Yes (Hospitalization)
  Sender: FDA-Public Use
  Company Number: US-GILEAD-2012-0062380

PATIENT
  Sex: Female

DRUGS (2)
  1. LETAIRIS [Suspect]
     Indication: PULMONARY ARTERIAL HYPERTENSION
     Dosage: 10 mg, UNK
     Route: 048
     Dates: start: 20100902
  2. METOLAZONE [Concomitant]

REACTIONS (5)
  - Syncope [Unknown]
  - Dehydration [Unknown]
  - Pulmonary function test abnormal [Unknown]
  - Hypokalaemia [Unknown]
  - Dyspnoea [Unknown]
